FAERS Safety Report 8813221 (Version 1)
Quarter: 2012Q4

REPORT INFORMATION
  Report Type: 
  Country: US (occurrence: US)
  Receive Date: 20120927
  Receipt Date: 20120927
  Transmission Date: 20130627
  Serious: No
  Sender: FDA-Public Use
  Company Number: US-AMGEN-USASP2012038590

PATIENT
  Age: 68 Year
  Sex: Female

DRUGS (7)
  1. PROLIA [Suspect]
     Indication: OSTEOPOROSIS POSTMENOPAUSAL
     Dosage: 60 mg, q6mo
     Route: 058
     Dates: start: 201201
  2. OMNIGEL [Concomitant]
  3. VITAMIN D /00107901/ [Concomitant]
  4. MULTIVITAMIN                       /00097801/ [Concomitant]
  5. FISH OIL [Concomitant]
  6. BETAXOLOL [Concomitant]
     Indication: GLAUCOMA
     Dosage: 1 UNK, UNK
  7. ADVAIR [Concomitant]
     Indication: ASTHMA

REACTIONS (3)
  - Joint swelling [Not Recovered/Not Resolved]
  - Dry skin [Not Recovered/Not Resolved]
  - Skin exfoliation [Not Recovered/Not Resolved]
